FAERS Safety Report 5506742-9 (Version None)
Quarter: 2007Q4

REPORT INFORMATION
  Report Type: 
  Country: None (occurrence: None)
  Receive Date: 20071105
  Receipt Date: 20071024
  Transmission Date: 20080405
  Serious: Yes (Hospitalization)
  Sender: FDA-Public Use
  Company Number: US-AMGEN-STX249545

PATIENT
  Sex: Female

DRUGS (1)
  1. ENBREL [Suspect]
     Indication: RHEUMATOID ARTHRITIS
     Route: 058
     Dates: start: 19990101

REACTIONS (5)
  - ARTHRALGIA [None]
  - ASTHENIA [None]
  - BONE DISORDER [None]
  - GAIT DISTURBANCE [None]
  - PAIN IN EXTREMITY [None]
